FAERS Safety Report 6900072-6 (Version None)
Quarter: 2010Q3

REPORT INFORMATION
  Report Type: 
  Country: None (occurrence: None)
  Receive Date: 20100708
  Receipt Date: 20100407
  Transmission Date: 20110219
  Serious: Yes (Other)
  Sender: FDA-Public Use
  Company Number: 2010044760

PATIENT
  Age: 52 Year
  Sex: Female
  Weight: 92.5 kg

DRUGS (14)
  1. CHANTIX [Suspect]
     Indication: SMOKING CESSATION THERAPY
     Dosage: 0.5 MG, 1X/DAY, ORAL 0.5 MG, 2X/DAY, ORAL
     Route: 048
     Dates: start: 20100325, end: 20100301
  2. CHANTIX [Suspect]
     Indication: SMOKING CESSATION THERAPY
     Dosage: 0.5 MG, 1X/DAY, ORAL 0.5 MG, 2X/DAY, ORAL
     Route: 048
     Dates: start: 20100301, end: 20100331
  3. ALBUTEROL [Concomitant]
  4. ATROVENT [Concomitant]
  5. WARFARIN SODIUM [Concomitant]
  6. PERCOCET [Concomitant]
  7. IBANDRONATE SODIUM [Concomitant]
  8. ZOCOR [Concomitant]
  9. OMEPRAZOLE [Concomitant]
  10. MONTELUKAST SODIUM [Concomitant]
  11. POTASSIUM CHLORIDE [Concomitant]
  12. NEURONTIN [Concomitant]
  13. FLUTICASONE PROPIONATE [Concomitant]
  14. CHLORTHALIDONE [Concomitant]

REACTIONS (4)
  - ERYTHEMA [None]
  - OEDEMA PERIPHERAL [None]
  - PRURITUS [None]
  - RASH [None]
